FAERS Safety Report 21471744 (Version 3)
Quarter: 2022Q4

REPORT INFORMATION
  Report Type: Spontaneous
  Country: US (occurrence: US)
  Receive Date: 20221018
  Receipt Date: 20221027
  Transmission Date: 20230113
  Serious: Yes (Life-Threatening, Other)
  Sender: FDA-Public Use
  Company Number: US-PFIZER INC-PV202200078557

PATIENT
  Age: 55 Year
  Sex: Female

DRUGS (1)
  1. MEROPENEM [Suspect]
     Active Substance: MEROPENEM
     Indication: Pseudomonas infection
     Dosage: UNK

REACTIONS (4)
  - Hypereosinophilic syndrome [Recovering/Resolving]
  - Coronary artery dissection [Recovering/Resolving]
  - Chest pain [Recovering/Resolving]
  - Lymphadenopathy [Recovering/Resolving]
